FAERS Safety Report 15604601 (Version 1)
Quarter: 2018Q4

REPORT INFORMATION
  Report Type: Other
  Country: ES (occurrence: ES)
  Receive Date: 20181110
  Receipt Date: 20181110
  Transmission Date: 20190205
  Serious: Yes (Hospitalization)
  Sender: FDA-Public Use
  Company Number: ES-CELLTRION INC.-2018ES023573

PATIENT

DRUGS (3)
  1. PENTASA [Concomitant]
     Active Substance: MESALAMINE
     Dosage: 2 G, 12 HOUR
     Route: 048
     Dates: start: 200907
  2. INFLIXIMAB (UNKNOWN) [Suspect]
     Active Substance: INFLIXIMAB
     Indication: CROHN^S DISEASE
     Dosage: 350 MG, 6 WEEK
     Route: 065
     Dates: start: 201507, end: 201507
  3. INFLIXIMAB (UNKNOWN) [Suspect]
     Active Substance: INFLIXIMAB
     Dosage: 350 MG, 6 WEEK
     Route: 065
     Dates: start: 20160615, end: 20160615

REACTIONS (2)
  - Testicular seminoma (pure) stage I [Recovered/Resolved]
  - Incorrect dose administered [Unknown]

NARRATIVE: CASE EVENT DATE: 201605
